FAERS Safety Report 4293549-6 (Version None)
Quarter: 2004Q1

REPORT INFORMATION
  Report Type: 
  Country: None (occurrence: None)
  Receive Date: 20040210
  Receipt Date: 20040202
  Transmission Date: 20041129
  Serious: Yes (Hospitalization)
  Sender: FDA-Public Use
  Company Number: 03P-087-0243103-00

PATIENT
  Age: 28 Year
  Sex: Male

DRUGS (7)
  1. BIAXIN [Suspect]
     Indication: HELICOBACTER INFECTION
     Dosage: 400 MG, 2 IN 1 D, PER ORAL
     Route: 048
     Dates: start: 20031109, end: 20031114
  2. LANSOPRAZOLE [Suspect]
     Indication: GASTRIC ULCER
     Dosage: 30 MG, 2 IN 1 D, PER ORAL
     Route: 048
     Dates: start: 20031109, end: 20031114
  3. LANSOPRAZOLE [Suspect]
     Indication: HELICOBACTER INFECTION
     Dosage: 30 MG, 2 IN 1 D, PER ORAL
     Route: 048
     Dates: start: 20031109, end: 20031114
  4. AMOXICILLIN [Suspect]
     Indication: HELICOBACTER INFECTION
     Dosage: PER ORAL
     Route: 048
     Dates: start: 20031109, end: 20031114
  5. RABEPRAZOLE SODIUM [Concomitant]
  6. TEPRENONE [Concomitant]
  7. ECABET MONOSODIUM [Concomitant]

REACTIONS (4)
  - ERYTHEMA [None]
  - PYREXIA [None]
  - RASH GENERALISED [None]
  - TONSILLITIS [None]
